FAERS Safety Report 7659957-8 (Version None)
Quarter: 2011Q3

REPORT INFORMATION
  Report Type: 
  Country: None (occurrence: None)
  Receive Date: 20110805
  Receipt Date: 20110729
  Transmission Date: 20111222
  Serious: Yes (Other)
  Sender: FDA-Public Use
  Company Number: US-JNJFOC-001-0184-M0100035

PATIENT
  Age: 55 Year
  Sex: Female

DRUGS (4)
  1. DIPHENHYDRAMINE HCL [Suspect]
     Indication: PRODUCT USED FOR UNKNOWN INDICATION
     Dosage: FREQUENCY TEXT: ONCE DAILY DOSE QTY: 50 MG
     Route: 048
     Dates: start: 20000401, end: 20000401
  2. CELECOXIB [Suspect]
     Indication: TENDONITIS
     Dosage: FREQUENCY TEXT: PRN DAILY DOSE QTY: 200 MG FOR SIX MONTHS
     Route: 048
     Dates: start: 19991001, end: 20000401
  3. SENNA [Concomitant]
     Indication: PRODUCT USED FOR UNKNOWN INDICATION
     Route: 065
  4. DIPHENHYDRAMINE HCL [Suspect]
     Route: 048

REACTIONS (4)
  - ANAPHYLACTOID REACTION [None]
  - BLOOD POTASSIUM DECREASED [None]
  - DIZZINESS [None]
  - CIRCULATORY COLLAPSE [None]
